FAERS Safety Report 13615831 (Version 2)
Quarter: 2017Q3

REPORT INFORMATION
  Report Type: Spontaneous
  Country: FR (occurrence: FR)
  Receive Date: 20170606
  Receipt Date: 20170724
  Transmission Date: 20171127
  Serious: Yes (Other)
  Sender: FDA-Public Use
  Company Number: FR-BEH-2017080940

PATIENT
  Age: 40 Year
  Sex: Male

DRUGS (5)
  1. PRIVIGEN [Suspect]
     Active Substance: HUMAN IMMUNOGLOBULIN G
     Indication: DEMYELINATING POLYNEUROPATHY
     Dosage: 40 G, TOT
     Route: 042
     Dates: start: 20170524
  2. CORTANCYL [Concomitant]
     Active Substance: PREDNISONE
     Dosage: UNK
     Route: 065
     Dates: start: 201703
  3. LOVENOX [Concomitant]
     Active Substance: ENOXAPARIN SODIUM
     Route: 065
  4. PRIVIGEN [Suspect]
     Active Substance: HUMAN IMMUNOGLOBULIN G
     Dosage: 36 ML, TOT
     Route: 042
     Dates: start: 20170525, end: 20170525
  5. PRIVIGEN [Suspect]
     Active Substance: HUMAN IMMUNOGLOBULIN G
     Dosage: 20 G, TOT
     Route: 042
     Dates: start: 20170524

REACTIONS (5)
  - Amnesia [Recovered/Resolved]
  - Abdominal pain [Recovered/Resolved]
  - Generalised tonic-clonic seizure [Recovered/Resolved]
  - Pyrexia [Recovered/Resolved]
  - Headache [Recovered/Resolved]

NARRATIVE: CASE EVENT DATE: 20170525
